FAERS Safety Report 4383418-5 (Version None)
Quarter: 2004Q2

REPORT INFORMATION
  Report Type: 
  Country: None (occurrence: None)
  Receive Date: 20040618
  Receipt Date: 20040607
  Transmission Date: 20050107
  Serious: Yes (Hospitalization)
  Sender: FDA-Public Use
  Company Number: 2004218022DE

PATIENT
  Age: 45 Year
  Sex: Female
  Weight: 50 kg

DRUGS (1)
  1. EPIRUBICIN [Suspect]
     Indication: BREAST CANCER FEMALE
     Dosage: 150 MG/M2, CYCLIC, IV
     Route: 042
     Dates: start: 20040525

REACTIONS (3)
  - FURUNCLE [None]
  - HEADACHE [None]
  - NEUTROPENIA [None]
